FAERS Safety Report 20645130 (Version 13)
Quarter: 2023Q1

REPORT INFORMATION
  Report Type: Spontaneous
  Country: CA (occurrence: CA)
  Receive Date: 20220328
  Receipt Date: 20230125
  Transmission Date: 20230417
  Serious: Yes (Death, Other)
  Sender: FDA-Public Use
  Company Number: CA-002147023-NVSC2022CA066199

PATIENT

DRUGS (94)
  1. ACETAMINOPHEN [Suspect]
     Active Substance: ACETAMINOPHEN
     Indication: Foetal exposure during pregnancy
     Dosage: UNK
     Route: 064
  2. ACETAMINOPHEN [Suspect]
     Active Substance: ACETAMINOPHEN
     Dosage: UNK
     Route: 064
  3. ACETAMINOPHEN [Suspect]
     Active Substance: ACETAMINOPHEN
     Dosage: UNK
     Route: 064
  4. CETIRIZINE HYDROCHLORIDE [Suspect]
     Active Substance: CETIRIZINE HYDROCHLORIDE
     Indication: Foetal exposure during pregnancy
     Dosage: UNK
     Route: 064
  5. CETIRIZINE HYDROCHLORIDE [Suspect]
     Active Substance: CETIRIZINE HYDROCHLORIDE
     Dosage: UNK (MATERNAL DOSE 10 MG)
     Route: 064
  6. CETIRIZINE HYDROCHLORIDE [Suspect]
     Active Substance: CETIRIZINE HYDROCHLORIDE
     Dosage: UNK
     Route: 064
  7. DICLOFENAC SODIUM [Suspect]
     Active Substance: DICLOFENAC SODIUM
     Indication: Foetal exposure during pregnancy
     Dosage: UNK, SOLUTION OPHTHALMIC
     Route: 064
  8. DICLOFENAC SODIUM [Suspect]
     Active Substance: DICLOFENAC SODIUM
     Dosage: UNK
     Route: 064
  9. DICLOFENAC SODIUM [Suspect]
     Active Substance: DICLOFENAC SODIUM
     Indication: Foetal exposure during pregnancy
     Dosage: UNK, QD (MATERNAL EXPOSURE DURING PREGNANCY: 50 MG)
     Route: 064
  10. DIPHENHYDRAMINE HYDROCHLORIDE [Suspect]
     Active Substance: DIPHENHYDRAMINE HYDROCHLORIDE
     Indication: Foetal exposure during pregnancy
     Dosage: UNK
     Route: 064
  11. DIPHENHYDRAMINE HYDROCHLORIDE [Suspect]
     Active Substance: DIPHENHYDRAMINE HYDROCHLORIDE
     Dosage: UNK
     Route: 064
  12. PSEUDOEPHEDRINE HYDROCHLORIDE [Suspect]
     Active Substance: PSEUDOEPHEDRINE HYDROCHLORIDE
     Indication: Foetal exposure during pregnancy
     Dosage: UNK
     Route: 064
  13. HYDROCORTISONE [Suspect]
     Active Substance: HYDROCORTISONE
     Indication: Foetal exposure during pregnancy
     Dosage: UNK
     Route: 064
  14. ACTEMRA [Suspect]
     Active Substance: TOCILIZUMAB
     Indication: Foetal exposure during pregnancy
     Dosage: UNK
     Route: 064
  15. ADALIMUMAB [Suspect]
     Active Substance: ADALIMUMAB
     Indication: Foetal exposure during pregnancy
     Dosage: UNK (SOLUTION SUBCUTANEOUS)
     Route: 064
  16. ADALIMUMAB [Suspect]
     Active Substance: ADALIMUMAB
     Indication: Foetal exposure during pregnancy
  17. ALENDRONIC ACID [Suspect]
     Active Substance: ALENDRONIC ACID
     Indication: Foetal exposure during pregnancy
     Dosage: UNK
     Route: 064
  18. ALENDRONIC ACID [Suspect]
     Active Substance: ALENDRONIC ACID
     Indication: Foetal exposure during pregnancy
     Dosage: UNK
     Route: 064
  19. ALENDRONIC ACID [Suspect]
     Active Substance: ALENDRONIC ACID
     Dosage: UNK
     Route: 064
  20. PREDNISONE [Suspect]
     Active Substance: PREDNISONE
     Indication: Foetal exposure during pregnancy
     Dosage: UNK
     Route: 064
  21. APREMILAST [Suspect]
     Active Substance: APREMILAST
     Indication: Foetal exposure during pregnancy
     Dosage: UNK
     Route: 064
  22. ARAVA [Suspect]
     Active Substance: LEFLUNOMIDE
     Indication: Foetal exposure during pregnancy
     Dosage: UNK
     Route: 064
  23. ARAVA [Suspect]
     Active Substance: LEFLUNOMIDE
     Dosage: UNK (MATERNAL EXPOSURE DURING PREGNANCY: 20 MG)
     Route: 064
  24. ARAVA [Suspect]
     Active Substance: LEFLUNOMIDE
     Dosage: UNK (MATERNAL EXPOSURE DURING PREGNANCY: 20 MG)
     Route: 064
  25. ARAVA [Suspect]
     Active Substance: LEFLUNOMIDE
     Dosage: UNK
     Route: 064
  26. ERELZI [Suspect]
     Active Substance: ETANERCEPT-SZZS
     Indication: Foetal exposure during pregnancy
     Dosage: UNK
     Route: 064
  27. CETIRIZINE HYDROCHLORIDE\PSEUDOEPHEDRINE HYDROCHLORIDE [Suspect]
     Active Substance: CETIRIZINE HYDROCHLORIDE\PSEUDOEPHEDRINE HYDROCHLORIDE
     Indication: Foetal exposure during pregnancy
     Dosage: UNK
     Route: 064
  28. CIMZIA [Suspect]
     Active Substance: CERTOLIZUMAB PEGOL
     Indication: Foetal exposure during pregnancy
     Dosage: UNK
     Route: 064
  29. CIMZIA [Suspect]
     Active Substance: CERTOLIZUMAB PEGOL
     Dosage: UNK (MATERNAL EXPOSURE DURING PREGNANCY: 400 MG)
     Route: 064
  30. CIMZIA [Suspect]
     Active Substance: CERTOLIZUMAB PEGOL
     Dosage: UNK (MATERNAL EXPOSURE DURING PREGNANCY: 400 MG)
     Route: 064
  31. CORTISONE ACETATE [Suspect]
     Active Substance: CORTISONE ACETATE
     Indication: Foetal exposure during pregnancy
     Dosage: UNK (MATERNAL DOSE 25 MG)
     Route: 064
  32. CORTISONE ACETATE [Suspect]
     Active Substance: CORTISONE ACETATE
     Dosage: UNK (MATERNAL EXPOSURE DURING PREGNANCY: 25 MG)
     Route: 064
  33. CORTISONE ACETATE [Suspect]
     Active Substance: CORTISONE ACETATE
     Indication: Foetal exposure during pregnancy
     Dosage: UNK
     Route: 064
  34. CORTISONE ACETATE [Suspect]
     Active Substance: CORTISONE ACETATE
     Dosage: UNK (MATERNAL DOSE 25 MG)
     Route: 064
  35. DESOXIMETASONE [Suspect]
     Active Substance: DESOXIMETASONE
     Indication: Foetal exposure during pregnancy
     Dosage: UNK
     Route: 064
  36. ENBREL [Suspect]
     Active Substance: ETANERCEPT
     Indication: Foetal exposure during pregnancy
     Dosage: UNK (MATERNAL EXPOSURE DURING PREGNANCY: 50 MG)
     Route: 064
  37. ENBREL [Suspect]
     Active Substance: ETANERCEPT
     Dosage: UNK, WE (MATERNAL EXPOSURE DURING PREGNANCY: 50 MG)
     Route: 064
  38. FOSAMAX [Suspect]
     Active Substance: ALENDRONATE SODIUM
     Indication: Foetal exposure during pregnancy
     Dosage: UNK
     Route: 064
  39. FOSAMAX [Suspect]
     Active Substance: ALENDRONATE SODIUM
     Dosage: UNK
     Route: 064
  40. FOLIC ACID [Suspect]
     Active Substance: FOLIC ACID
     Indication: Foetal exposure during pregnancy
     Dosage: UNK (MATERNAL EXPOSURE DURING PREGNANCY: 1 MG)
     Route: 064
  41. FOLIC ACID [Suspect]
     Active Substance: FOLIC ACID
     Indication: Foetal exposure during pregnancy
     Dosage: UNK, (MATERNAL EXPOSURE DURING PREGNANCY: 0.5 MG)
     Route: 064
  42. FOLIC ACID [Suspect]
     Active Substance: FOLIC ACID
     Dosage: UNK, (MATERNAL EXPOSURE DURING PREGNANCY: 0.5 MG)
     Route: 064
  43. FOLIC ACID [Suspect]
     Active Substance: FOLIC ACID
     Dosage: UNK, (MATERNAL EXPOSURE DURING PREGNANCY: 25 MG)
     Route: 064
  44. GOLIMUMAB [Suspect]
     Active Substance: GOLIMUMAB
     Indication: Foetal exposure during pregnancy
     Dosage: UNK
     Route: 064
  45. HUMIRA [Suspect]
     Active Substance: ADALIMUMAB
     Indication: Foetal exposure during pregnancy
     Dosage: UNK (MATERNAL DOSE DURING PREGNANCY:4 MG)
     Route: 064
  46. HUMIRA [Suspect]
     Active Substance: ADALIMUMAB
     Dosage: UNK, (MATERNAL DOSE DURING PREGNANCY: 40 MG)
     Route: 064
  47. HUMIRA [Suspect]
     Active Substance: ADALIMUMAB
     Dosage: UNK, (MATERNAL DOSE DURING PREGNANCY: 40 MG
     Route: 064
  48. HUMIRA [Suspect]
     Active Substance: ADALIMUMAB
     Dosage: UNK, WE (MATERNAL DOSE DURING PREGNANCY:400 MG, QW, SOLUTION SUBCUTANEOUS)
     Route: 064
  49. HYDROXYCHLOROQUINE SULFATE [Suspect]
     Active Substance: HYDROXYCHLOROQUINE SULFATE
     Indication: Foetal exposure during pregnancy
     Dosage: UNK (MATERNAL EXPOSURE DURING PREGNANCY: 400 MG)
     Route: 064
  50. HYDROXYCHLOROQUINE SULFATE [Suspect]
     Active Substance: HYDROXYCHLOROQUINE SULFATE
     Dosage: UNK
     Route: 064
  51. HYDROXYCHLOROQUINE SULFATE [Suspect]
     Active Substance: HYDROXYCHLOROQUINE SULFATE
     Dosage: UNK
     Route: 064
  52. HYDROXYCHLOROQUINE [Suspect]
     Active Substance: HYDROXYCHLOROQUINE
     Indication: Foetal exposure during pregnancy
     Dosage: UNK
     Route: 064
  53. HYDROXYCHLOROQUINE [Suspect]
     Active Substance: HYDROXYCHLOROQUINE
     Dosage: UNK, (MATERNAL EXPOSURE DURING PREGNANCY: 400 MG)
     Route: 065
  54. HYDROCORTISONE ACETATE [Suspect]
     Active Substance: HYDROCORTISONE ACETATE
     Indication: Foetal exposure during pregnancy
     Dosage: UNK
     Route: 064
  55. LEFLUNOMIDE [Suspect]
     Active Substance: LEFLUNOMIDE
     Indication: Foetal exposure during pregnancy
     Dosage: UNK
     Route: 064
  56. LEFLUNOMIDE [Suspect]
     Active Substance: LEFLUNOMIDE
     Indication: Foetal exposure during pregnancy
     Dosage: UNK, MATERNAL EXPOSURE DURING PREGNANCY: 20 MG
     Route: 064
  57. METHOTREXATE [Suspect]
     Active Substance: METHOTREXATE
     Indication: Foetal exposure during pregnancy
     Dosage: UNK
     Route: 064
  58. METHOTREXATE [Suspect]
     Active Substance: METHOTREXATE
     Dosage: UNK, WE (MATERNAL EXPOSURE DURING PREGNANCY 25 MG)
     Route: 064
  59. METHOTREXATE [Suspect]
     Active Substance: METHOTREXATE
     Dosage: UNK, WE (MATERNAL EXPOSURE DURING PREGNANCY 20 MG)
     Route: 064
  60. METHOTREXATE [Suspect]
     Active Substance: METHOTREXATE
     Dosage: UNK, QD (MATERNAL EXPOSURE DURING PREGNANCY 20 MG)
     Route: 064
  61. METHYLPREDNISOLONE SODIUM SUCCINATE [Suspect]
     Active Substance: METHYLPREDNISOLONE SODIUM SUCCINATE
     Indication: Foetal exposure during pregnancy
     Dosage: UNK
     Route: 064
  62. ORENCIA [Suspect]
     Active Substance: ABATACEPT
     Indication: Foetal exposure during pregnancy
     Dosage: UNK
     Route: 064
  63. OTEZLA [Suspect]
     Active Substance: APREMILAST
     Indication: Foetal exposure during pregnancy
     Dosage: UNK
     Route: 064
  64. PHTHALYLSULFATHIAZOLE [Suspect]
     Active Substance: PHTHALYLSULFATHIAZOLE
     Indication: Foetal exposure during pregnancy
     Dosage: UNK, MATERNAL EXPOSURE DURING PREGNANCY: 400 MG
     Route: 064
  65. PREDNISONE [Suspect]
     Active Substance: PREDNISONE
     Indication: Foetal exposure during pregnancy
     Dosage: UNK (MATERNAL DOSE 25 MG)
     Route: 064
  66. PREDNISONE [Suspect]
     Active Substance: PREDNISONE
     Dosage: UNK, (MATERNAL EXPOSURE DURING PREGNANCY 40 MG)
     Route: 064
  67. CETIRIZINE HYDROCHLORIDE\PSEUDOEPHEDRINE HYDROCHLORIDE [Suspect]
     Active Substance: CETIRIZINE HYDROCHLORIDE\PSEUDOEPHEDRINE HYDROCHLORIDE
     Indication: Foetal exposure during pregnancy
     Dosage: UNK (EXTENDED RELEASE)
     Route: 064
  68. REMICADE [Suspect]
     Active Substance: INFLIXIMAB
     Indication: Foetal exposure during pregnancy
     Dosage: UNK
     Route: 064
  69. REMICADE [Suspect]
     Active Substance: INFLIXIMAB
     Dosage: UNK
     Route: 064
  70. REMICADE [Suspect]
     Active Substance: INFLIXIMAB
     Dosage: UNK
     Route: 064
  71. RITUXIMAB [Suspect]
     Active Substance: RITUXIMAB
     Indication: Foetal exposure during pregnancy
     Dosage: UNK
     Route: 064
  72. SIMPONI [Suspect]
     Active Substance: GOLIMUMAB
     Indication: Foetal exposure during pregnancy
     Dosage: UNK, SOLUTION
     Route: 064
  73. SIMPONI [Suspect]
     Active Substance: GOLIMUMAB
     Dosage: UNK
     Route: 064
  74. SOLU-MEDROL [Suspect]
     Active Substance: METHYLPREDNISOLONE SODIUM SUCCINATE
     Indication: Foetal exposure during pregnancy
     Dosage: UNK
     Route: 064
  75. SULFASALAZINE [Suspect]
     Active Substance: SULFASALAZINE
     Indication: Foetal exposure during pregnancy
     Dosage: UNK (MATERNAL DOSE:1000 MG)
     Route: 064
  76. SULFASALAZINE [Suspect]
     Active Substance: SULFASALAZINE
     Dosage: UNK (MATERNAL DOSE 500 MG)
     Route: 064
  77. SULFASALAZINE [Suspect]
     Active Substance: SULFASALAZINE
     Dosage: UNK, BID (MATERNAL EXPOSURE DURING PREGNANCY:2 G)
     Route: 064
  78. SULFASALAZINE [Suspect]
     Active Substance: SULFASALAZINE
     Dosage: UNK, BID (MATERNAL EXPOSURE DURING PREGNANCY: 100 MG)
     Route: 064
  79. SULFASALAZINE [Suspect]
     Active Substance: SULFASALAZINE
     Dosage: UNK
     Route: 064
  80. SULFASALAZINE [Suspect]
     Active Substance: SULFASALAZINE
     Dosage: UNK (MATERNAL DOSE 500 MG)
     Route: 064
  81. SULFASALAZINE [Suspect]
     Active Substance: SULFASALAZINE
     Dosage: UNK (MATERNAL DOSE:1000 MG)
     Route: 064
  82. STELARA [Suspect]
     Active Substance: USTEKINUMAB
     Indication: Foetal exposure during pregnancy
     Dosage: UNK, SOLUTION
     Route: 064
  83. STELARA [Suspect]
     Active Substance: USTEKINUMAB
     Dosage: UNK
     Route: 064
  84. TOCILIZUMAB [Suspect]
     Active Substance: TOCILIZUMAB
     Indication: Foetal exposure during pregnancy
     Dosage: UNK
     Route: 064
  85. XELJANZ [Suspect]
     Active Substance: TOFACITINIB CITRATE
     Indication: Foetal exposure during pregnancy
     Dosage: UNK
     Route: 064
  86. PREDNISONE [Suspect]
     Active Substance: PREDNISONE
     Indication: Foetal exposure during pregnancy
     Dosage: UNK
     Route: 064
  87. CAFFEINE CITRATE [Concomitant]
     Active Substance: CAFFEINE CITRATE
     Indication: Foetal exposure during pregnancy
     Dosage: UNK
     Route: 064
  88. CODEINE [Concomitant]
     Active Substance: CODEINE
     Indication: Foetal exposure during pregnancy
     Dosage: UNK
     Route: 064
  89. DICLOFENAC POTASSIUM [Concomitant]
     Active Substance: DICLOFENAC POTASSIUM
     Indication: Foetal exposure during pregnancy
     Dosage: UNK
     Route: 064
  90. IBUPROFEN [Concomitant]
     Active Substance: IBUPROFEN
     Indication: Foetal exposure during pregnancy
     Dosage: UNK
     Route: 064
  91. LISINOPRIL [Concomitant]
     Active Substance: LISINOPRIL
     Indication: Foetal exposure during pregnancy
     Dosage: UNK
     Route: 064
  92. SULFASALAZINE [Concomitant]
     Active Substance: SULFASALAZINE
     Indication: Foetal exposure during pregnancy
     Dosage: UNK
  93. TOFACITINIB CITRATE [Concomitant]
     Active Substance: TOFACITINIB CITRATE
     Indication: Foetal exposure during pregnancy
     Dosage: UNK
     Route: 064
  94. VITAMIN D3 [Concomitant]
     Active Substance: CHOLECALCIFEROL
     Indication: Foetal exposure during pregnancy
     Dosage: UNK

REACTIONS (2)
  - Death neonatal [Fatal]
  - Foetal exposure during pregnancy [Fatal]
